FAERS Safety Report 8871885 (Version 1)
Quarter: 2012Q4

REPORT INFORMATION
  Report Type: 
  Country: US (occurrence: US)
  Receive Date: 20121029
  Receipt Date: 20121029
  Transmission Date: 20130627
  Serious: No
  Sender: FDA-Public Use
  Company Number: US-JNJFOC-20121009036

PATIENT

DRUGS (2)
  1. DURAGESIC [Suspect]
     Indication: ANALGESIC THERAPY
     Dosage: patch cut into 2 (to make a 50ug/hr patch)
     Route: 062
     Dates: start: 2012
  2. MYLAN FENTANYL TRANSDERMAL SYSTEM [Suspect]
     Indication: ANALGESIC THERAPY
     Route: 062

REACTIONS (3)
  - Wrong technique in drug usage process [Unknown]
  - Somnolence [Unknown]
  - Drug administration error [Unknown]
